FAERS Safety Report 8505644-3 (Version None)
Quarter: 2012Q3

REPORT INFORMATION
  Report Type: 
  Country: None (occurrence: None)
  Receive Date: 20120712
  Receipt Date: 20120705
  Transmission Date: 20120928
  Serious: Yes (Death, Hospitalization, Other)
  Sender: FDA-Public Use
  Company Number: US-ELI_LILLY_AND_COMPANY-US201103003149

PATIENT
  Sex: Female

DRUGS (20)
  1. PREDNISONE [Concomitant]
     Dosage: 10 MG, UNKNOWN
  2. PREDNISONE [Concomitant]
     Dosage: 100 MG, UNKNOWN
  3. OMEPRAZOLE [Concomitant]
     Dosage: 25 MG, BID
  4. FORTEO [Suspect]
     Indication: OSTEOPOROSIS
     Dosage: 20 UG, DAILY (1/D)
     Route: 065
     Dates: start: 20110308
  5. FORTEO [Suspect]
     Dosage: 20 UG, QD
  6. PEPCID [Concomitant]
  7. WARFARIN SODIUM [Concomitant]
  8. CHEMOTHERAPEUTICS [Concomitant]
  9. FORTEO [Suspect]
     Dosage: 20 UG, QD
     Route: 065
  10. IMURAN [Concomitant]
     Dosage: 25 MG, UNKNOWN
  11. PLAQUENIL [Concomitant]
     Dosage: 200 MG, UNKNOWN
  12. CARVEDILOL [Concomitant]
     Dosage: 6.2 MG, UNKNOWN
  13. ASTHMADEX [Concomitant]
  14. IRON [Concomitant]
  15. CALCIUM [Concomitant]
  16. MULTI-VITAMIN [Concomitant]
  17. CITALOPRAM HYDROBROMIDE [Concomitant]
     Dosage: 40 MG, UNKNOWN
  18. PERCOCET [Concomitant]
  19. LOSARTAN POTASSIUM [Concomitant]
     Dosage: 25 MG, UNKNOWN
  20. LOVASTATIN [Concomitant]

REACTIONS (13)
  - HYPERSENSITIVITY [None]
  - NASOPHARYNGITIS [None]
  - COLITIS [None]
  - OXYGEN CONSUMPTION DECREASED [None]
  - WHITE BLOOD CELL COUNT DECREASED [None]
  - NON-HODGKIN'S LYMPHOMA [None]
  - HOSPITALISATION [None]
  - BLOOD PRESSURE DECREASED [None]
  - DIZZINESS [None]
  - DEATH [None]
  - KIDNEY INFECTION [None]
  - PNEUMONIA [None]
  - HEADACHE [None]
